FAERS Safety Report 20343741 (Version 1)
Quarter: 2022Q1

REPORT INFORMATION
  Report Type: Spontaneous
  Country: US (occurrence: US)
  Receive Date: 20220118
  Receipt Date: 20220118
  Transmission Date: 20220423
  Serious: Yes (Other)
  Sender: FDA-Public Use
  Company Number: US-CELLTRION INC.-2022US000249

PATIENT

DRUGS (1)
  1. TRUXIMA [Suspect]
     Active Substance: RITUXIMAB-ABBS
     Indication: Pemphigus
     Dosage: 1000MG D1, 15 Q168 (MOST RECENT THERAPY DATE: 25 JAN 2022)
     Dates: start: 20220111

REACTIONS (2)
  - Pemphigus [Unknown]
  - Off label use [Unknown]
